FAERS Safety Report 5400059-9 (Version None)
Quarter: 2007Q3

REPORT INFORMATION
  Report Type: 
  Country: None (occurrence: None)
  Receive Date: 20070730
  Receipt Date: 20070718
  Transmission Date: 20080115
  Serious: Yes (Other)
  Sender: FDA-Public Use
  Company Number: US-NOVOPROD-265744

PATIENT

DRUGS (2)
  1. NORDITROPIN NORDIFLEX [Suspect]
     Indication: GROWTH HORMONE DEFICIENCY
     Dosage: UNKNOWN
     Route: 058
     Dates: end: 20050101
  2. NORDITROPIN NORDIFLEX [Suspect]
     Dosage: UNKNOWN
     Dates: start: 20070301

REACTIONS (2)
  - ASTROCYTOMA [None]
  - DISEASE PROGRESSION [None]
